FAERS Safety Report 17798771 (Version 1)
Quarter: 2020Q2

REPORT INFORMATION
  Report Type: Spontaneous
  Country: GB (occurrence: GB)
  Receive Date: 20200518
  Receipt Date: 20200518
  Transmission Date: 20200714
  Serious: Yes (Other)
  Sender: FDA-Public Use
  Company Number: GB-BECTON DICKINSON-2020BDN00131

PATIENT
  Age: 68 Year
  Sex: Female

DRUGS (7)
  1. CHLORHEXIDINE [Suspect]
     Active Substance: CHLORHEXIDINE
     Indication: ANTIBIOTIC PROPHYLAXIS
     Route: 061
  2. GENTAMYCIN [Suspect]
     Active Substance: GENTAMICIN
     Route: 065
  3. FENTANYL. [Concomitant]
     Active Substance: FENTANYL
     Route: 065
  4. PROPOFOL. [Concomitant]
     Active Substance: PROPOFOL
     Route: 065
  5. METRONIDAZOLE. [Concomitant]
     Active Substance: METRONIDAZOLE
     Route: 065
  6. POVIDONE-IODINE. [Suspect]
     Active Substance: POVIDONE-IODINE
     Indication: ANTIBIOTIC PROPHYLAXIS
     Route: 061
  7. ROCURONIUM [Suspect]
     Active Substance: ROCURONIUM BROMIDE
     Route: 065

REACTIONS (1)
  - Anaphylactic reaction [Recovered/Resolved]
